FAERS Safety Report 5376752-3 (Version None)
Quarter: 2007Q3

REPORT INFORMATION
  Report Type: 
  Country: None (occurrence: None)
  Receive Date: 20070703
  Receipt Date: 20070628
  Transmission Date: 20080115
  Serious: Yes (Death, Other)
  Sender: FDA-Public Use
  Company Number: PHBS2007JP06179

PATIENT
  Age: 79 Year
  Sex: Male

DRUGS (2)
  1. GLEEVEC [Suspect]
     Indication: CHRONIC MYELOID LEUKAEMIA
     Dosage: 400 MG/D
     Route: 048
     Dates: start: 20011218, end: 20070423
  2. RIFAMPICIN [Suspect]
     Indication: TUBERCULOSIS
     Dosage: 450 MG/D
     Route: 048
     Dates: start: 20070406, end: 20070423

REACTIONS (2)
  - PLATELET COUNT DECREASED [None]
  - RENAL FAILURE [None]
